FAERS Safety Report 7563409-3 (Version None)
Quarter: 2011Q2

REPORT INFORMATION
  Report Type: 
  Country: None (occurrence: None)
  Receive Date: 20110622
  Receipt Date: 20110615
  Transmission Date: 20111010
  Serious: Yes (Hospitalization)
  Sender: FDA-Public Use
  Company Number: B0703768A

PATIENT
  Sex: Female
  Weight: 69 kg

DRUGS (11)
  1. LEVOFLOXACIN [Concomitant]
     Dosage: 400MG PER DAY
     Route: 048
     Dates: start: 20090110, end: 20090120
  2. ZOVIRAX [Concomitant]
     Dosage: 600MG PER DAY
     Route: 048
     Dates: start: 20090110, end: 20090212
  3. GRANISETRON [Concomitant]
     Dosage: 3MG PER DAY
     Route: 042
     Dates: start: 20090110, end: 20090115
  4. ALKERAN [Suspect]
     Indication: CORD BLOOD TRANSPLANT THERAPY
     Dosage: 50MGM2 PER DAY
     Route: 042
     Dates: start: 20090112, end: 20090113
  5. METHOTREXATE [Concomitant]
     Indication: IMMUNOSUPPRESSION
     Dosage: 15MG PER DAY
     Route: 065
     Dates: start: 20090118, end: 20090123
  6. METHYCOBAL [Concomitant]
     Dosage: 1500MCG PER DAY
     Route: 048
     Dates: start: 20090112, end: 20090120
  7. URSO 250 [Concomitant]
     Dosage: 600MG PER DAY
     Route: 048
     Dates: start: 20090110, end: 20090205
  8. FLUDARA [Suspect]
     Indication: CORD BLOOD TRANSPLANT THERAPY
     Dosage: 30MGM2 PER DAY
     Route: 042
     Dates: start: 20090110, end: 20090115
  9. GASPORT [Concomitant]
     Dosage: 20MG PER DAY
     Route: 048
     Dates: start: 20090110, end: 20090120
  10. TACROLIMUS [Suspect]
     Indication: IMMUNOSUPPRESSION
     Dosage: 1.6MG PER DAY
     Route: 065
     Dates: start: 20090116
  11. MYCOSYST [Concomitant]
     Dosage: 400MG PER DAY
     Route: 048
     Dates: start: 20090110, end: 20090120

REACTIONS (2)
  - PNEUMONIA [None]
  - ACUTE GRAFT VERSUS HOST DISEASE [None]
